FAERS Safety Report 25441233 (Version 1)
Quarter: 2025Q2

REPORT INFORMATION
  Report Type: Spontaneous
  Country: US (occurrence: US)
  Receive Date: 20250616
  Receipt Date: 20250616
  Transmission Date: 20250716
  Serious: No
  Sender: LUNDBECK
  Company Number: US-LUNDBECK-DKLU4015694

PATIENT
  Age: 39 Year
  Sex: Female
  Weight: 88.451 kg

DRUGS (1)
  1. VYEPTI [Suspect]
     Active Substance: EPTINEZUMAB-JJMR
     Indication: Migraine
     Dosage: 300 MILLIGRAM
     Route: 041
     Dates: start: 20250218

REACTIONS (1)
  - Rhinorrhoea [Recovered/Resolved]

NARRATIVE: CASE EVENT DATE: 20250201
